FAERS Safety Report 4874064-5 (Version None)
Quarter: 2006Q1

REPORT INFORMATION
  Report Type: 
  Country: None (occurrence: None)
  Receive Date: 20060104
  Receipt Date: 20051221
  Transmission Date: 20060701
  Serious: Yes (Other)
  Sender: FDA-Public Use
  Company Number: 2005172518

PATIENT
  Sex: Male
  Weight: 97.5234 kg

DRUGS (1)
  1. VIAGRA [Suspect]
     Indication: ERECTILE DYSFUNCTION
     Dosage: ORAL
     Route: 048

REACTIONS (4)
  - ATRIAL FIBRILLATION [None]
  - DRUG EFFECT DECREASED [None]
  - GENITAL PAIN MALE [None]
  - GROIN PAIN [None]
